FAERS Safety Report 7129542-5 (Version None)
Quarter: 2010Q4

REPORT INFORMATION
  Report Type: 
  Country: None (occurrence: None)
  Receive Date: 20101130
  Receipt Date: 20101122
  Transmission Date: 20110411
  Serious: Yes (Hospitalization)
  Sender: FDA-Public Use
  Company Number: US-PURDUE-USA-2010-0055561

PATIENT
  Age: 79 Year
  Sex: Female

DRUGS (1)
  1. OXYCONTIN [Suspect]
     Indication: INTERVERTEBRAL DISC DEGENERATION
     Dosage: UNK

REACTIONS (1)
  - HOSPITALISATION [None]
